FAERS Safety Report 23838589 (Version 2)
Quarter: 2024Q4

REPORT INFORMATION
  Report Type: Spontaneous
  Country: FR (occurrence: FR)
  Receive Date: 20240509
  Receipt Date: 20241022
  Transmission Date: 20250114
  Serious: Yes (Hospitalization)
  Sender: SANDOZ
  Company Number: None

PATIENT
  Age: 28 Year
  Sex: Female
  Weight: 78 kg

DRUGS (7)
  1. ALCOHOL [Suspect]
     Active Substance: ALCOHOL
     Indication: Product used for unknown indication
     Dosage: BLOOD ALCOHOL LEVEL OF 1.3 G/L
     Route: 065
     Dates: start: 20240418
  2. BROMAZEPAM [Suspect]
     Active Substance: BROMAZEPAM
     Indication: Product used for unknown indication
     Dosage: 156 MILLIGRAM IN 1 TOTAL // ,26 TABLETS OF 6MG
     Route: 048
     Dates: start: 20240418
  3. COCAINE [Suspect]
     Active Substance: COCAINE
     Indication: Product used for unknown indication
     Dosage: UNK
     Route: 065
     Dates: start: 20240418
  4. LOXAPINE [Suspect]
     Active Substance: LOXAPINE
     Indication: Product used for unknown indication
     Dosage: 350 MG (7 TABLETS X 350 MILLIGRAM IN 1 TOTAL)
     Route: 048
     Dates: start: 20240418
  5. QUETIAPINE [Suspect]
     Active Substance: QUETIAPINE
     Indication: Product used for unknown indication
     Dosage: 500 MG (10 TABLETS OF QUETIAPINE 50 MG, 500 MG IN 1 TOTAL)
     Route: 048
     Dates: start: 20240418
  6. SERTRALINE HYDROCHLORIDE [Suspect]
     Active Substance: SERTRALINE HYDROCHLORIDE
     Indication: Product used for unknown indication
     Dosage: 1000 MG (20 TABLETS OF 50MG, 1000 MILLIGRAM IN 1 TOTAL //)
     Route: 048
     Dates: start: 20240418
  7. VENLAFAXINE [Suspect]
     Active Substance: VENLAFAXINE HYDROCHLORIDE
     Indication: Product used for unknown indication
     Dosage: 975 MG (13 TABLETS OF 75MG, 975 MILLIGRAM IN 1 TOTAL)
     Route: 048
     Dates: start: 20240418

REACTIONS (3)
  - Electrocardiogram abnormal [Recovered/Resolved]
  - Poisoning deliberate [Recovered/Resolved]
  - Depressed level of consciousness [Recovered/Resolved]

NARRATIVE: CASE EVENT DATE: 20240418
